FAERS Safety Report 7760021-8 (Version None)
Quarter: 2011Q3

REPORT INFORMATION
  Report Type: 
  Country: None (occurrence: None)
  Receive Date: 20110919
  Receipt Date: 20110906
  Transmission Date: 20111222
  Serious: Yes (Hospitalization)
  Sender: FDA-Public Use
  Company Number: US-BAYER-201031172NA

PATIENT
  Age: 26 Year
  Sex: Female
  Weight: 59.41 kg

DRUGS (3)
  1. YASMIN [Suspect]
     Indication: CONTRACEPTION
     Route: 065
  2. EPIPEN [Concomitant]
     Indication: HYPERSENSITIVITY
     Dosage: UNK UNK, PRN
     Route: 030
  3. CITALOPRAM HYDROBROMIDE [Concomitant]
     Indication: MENTAL STATUS CHANGES
     Dosage: 10 MG, HS
     Route: 048
     Dates: start: 20070101

REACTIONS (6)
  - HEADACHE [None]
  - PARAESTHESIA [None]
  - DIPLOPIA [None]
  - INTRACRANIAL VENOUS SINUS THROMBOSIS [None]
  - INJURY [None]
  - MUSCULAR WEAKNESS [None]
